FAERS Safety Report 9311909 (Version 1)
Quarter: 2013Q2

REPORT INFORMATION
  Report Type: Spontaneous
  Country: CA (occurrence: CA)
  Receive Date: 20130528
  Receipt Date: 20130528
  Transmission Date: 20140414
  Serious: Yes (Other)
  Sender: FDA-Public Use
  Company Number: PHHY2013CA052791

PATIENT
  Age: 15 Year
  Sex: Male
  Weight: 132 kg

DRUGS (5)
  1. RITALIN [Suspect]
     Dosage: 10.0 MG, UNK
     Route: 048
  2. CONCERTA [Suspect]
     Dosage: 54.0 MG, UNK
     Route: 048
  3. FLOVENT [Concomitant]
  4. BUDESONIDE [Concomitant]
  5. VENTOLIN                           /00942701/ [Concomitant]

REACTIONS (1)
  - Blood creatine increased [Unknown]
